FAERS Safety Report 19668787 (Version 2)
Quarter: 2022Q3

REPORT INFORMATION
  Report Type: Spontaneous
  Country: ZA (occurrence: ZA)
  Receive Date: 20210806
  Receipt Date: 20220707
  Transmission Date: 20221027
  Serious: Yes (Death, Life-Threatening, Hospitalization, Other)
  Sender: FDA-Public Use
  Company Number: ZA-35507-2021-13536

PATIENT
  Age: 87 Year
  Sex: Male

DRUGS (6)
  1. SIMVASTATIN [Suspect]
     Active Substance: SIMVASTATIN
     Indication: Blood cholesterol
     Dosage: 10 MILLIGRAM
     Route: 048
     Dates: end: 202107
  2. PRAMIPEXOLE DIHYDROCHLORIDE [Suspect]
     Active Substance: PRAMIPEXOLE DIHYDROCHLORIDE
     Indication: Parkinson^s disease
     Dosage: 0.25 MILLIGRAM
     Route: 048
     Dates: end: 202107
  3. INDAPAMIDE\PERINDOPRIL ARGININE [Suspect]
     Active Substance: INDAPAMIDE\PERINDOPRIL ARGININE
     Indication: Hypertension
     Dosage: UNK, 10/.2.5 MG
     Route: 048
     Dates: end: 202107
  4. AMITRIPTYLINE [Suspect]
     Active Substance: AMITRIPTYLINE
     Indication: Depression
     Dosage: 25 MILLIGRAM
     Route: 048
     Dates: end: 202107
  5. VERAPAMIL HYDROCHLORIDE [Suspect]
     Active Substance: VERAPAMIL HYDROCHLORIDE
     Indication: Hypertension
     Dosage: 240 MILLIGRAM
     Route: 048
     Dates: end: 202107
  6. AMIODARONE [Suspect]
     Active Substance: AMIODARONE
     Indication: Cardiac disorder
     Dosage: 200 MILLIGRAM
     Route: 048
     Dates: end: 202107

REACTIONS (3)
  - Cerebrovascular accident [Fatal]
  - Cardiac failure [Fatal]
  - Coma [Not Recovered/Not Resolved]

NARRATIVE: CASE EVENT DATE: 20210701
